FAERS Safety Report 14187757 (Version 1)
Quarter: 2017Q4

REPORT INFORMATION
  Report Type: Spontaneous
  Country: US (occurrence: US)
  Receive Date: 20171114
  Receipt Date: 20171114
  Transmission Date: 20180321
  Serious: No
  Sender: FDA-Public Use
  Company Number: US-CELLTRION HEALTHCARE JAPAN K.K.-2017US013425

PATIENT

DRUGS (1)
  1. INFLECTRA [Suspect]
     Active Substance: INFLIXIMAB-DYYB
     Indication: PSORIATIC ARTHROPATHY
     Dosage: 6 MG/KG,EVERY 4 WEEKS
     Route: 065

REACTIONS (1)
  - Drug prescribing error [Unknown]
